FAERS Safety Report 19030763 (Version 1)
Quarter: 2021Q1

REPORT INFORMATION
  Report Type: Spontaneous
  Country: DK (occurrence: DK)
  Receive Date: 20210319
  Receipt Date: 20210319
  Transmission Date: 20210420
  Serious: Yes (Hospitalization, Other)
  Sender: FDA-Public Use
  Company Number: DK-ACCORD-219821

PATIENT
  Age: 74 Year
  Sex: Female
  Weight: 59 kg

DRUGS (48)
  1. POTASSIUM [Concomitant]
     Active Substance: POTASSIUM
     Dates: start: 20181011
  2. PANTOPRAZOLE [Concomitant]
     Active Substance: PANTOPRAZOLE
     Dates: start: 20180903
  3. ONDANSETRON [Concomitant]
     Active Substance: ONDANSETRON
     Dates: start: 20201130, end: 20201201
  4. OXYCODONE [Concomitant]
     Active Substance: OXYCODONE
     Dates: start: 20201122
  5. PREDNISOLONE. [Concomitant]
     Active Substance: PREDNISOLONE
     Dates: start: 20201125, end: 20201129
  6. FOSCARNET/FOSCARNET SODIUM [Concomitant]
     Dates: start: 20210118, end: 20210121
  7. VALGANCICLOVIR/VALGANCICLOVIR HYDROCHLORIDE [Concomitant]
     Active Substance: VALGANCICLOVIR
     Dosage: 2 DAILY
     Route: 048
     Dates: start: 20210122
  8. EPCORITAMAB. [Suspect]
     Active Substance: EPCORITAMAB
     Indication: DIFFUSE LARGE B-CELL LYMPHOMA
     Route: 058
     Dates: start: 20201207, end: 20201207
  9. OXALIPLATIN. [Suspect]
     Active Substance: OXALIPLATIN
     Indication: DIFFUSE LARGE B-CELL LYMPHOMA
     Route: 042
     Dates: start: 20201214, end: 20201214
  10. VANCOMYCIN [Concomitant]
     Active Substance: VANCOMYCIN
     Dates: start: 20201122, end: 20210116
  11. POTASSIUM GLUCONATE [Concomitant]
     Active Substance: POTASSIUM GLUCONATE
     Dates: start: 20201227, end: 20201228
  12. PIPERACILLIN. [Concomitant]
     Active Substance: PIPERACILLIN SODIUM
     Dates: start: 20101122, end: 20201129
  13. FLUCONAZOLE. [Concomitant]
     Active Substance: FLUCONAZOLE
     Dates: start: 20201205
  14. SODIUM CHLORIDE. [Concomitant]
     Active Substance: SODIUM CHLORIDE
     Dates: start: 20201216, end: 20201217
  15. POTASSIUM [Concomitant]
     Active Substance: POTASSIUM
     Dates: start: 20201209, end: 20210109
  16. PARACETAMOL [Concomitant]
     Active Substance: ACETAMINOPHEN
     Dates: start: 20201130, end: 20210106
  17. GEMCITABINE/GEMCITABINE HYDROCHLORIDE [Suspect]
     Active Substance: GEMCITABINE\GEMCITABINE HYDROCHLORIDE
     Indication: DIFFUSE LARGE B-CELL LYMPHOMA
     Route: 042
     Dates: start: 20210106
  18. EPCORITAMAB. [Suspect]
     Active Substance: EPCORITAMAB
     Indication: DIFFUSE LARGE B-CELL LYMPHOMA
     Dosage: DOSE INTERRUPTED
     Route: 058
     Dates: start: 20201130, end: 20201130
  19. EPCORITAMAB. [Suspect]
     Active Substance: EPCORITAMAB
     Indication: DIFFUSE LARGE B-CELL LYMPHOMA
     Dosage: ONGOING
     Route: 058
     Dates: start: 20210125
  20. PIPERACILLIN/TAZOBACTAM [Suspect]
     Active Substance: PIPERACILLIN SODIUM\TAZOBACTAM SODIUM
     Indication: UROSEPSIS
     Route: 042
     Dates: start: 20201227, end: 20210105
  21. ALENDRONIC ACID [Concomitant]
     Active Substance: ALENDRONIC ACID
     Dates: start: 20150602
  22. LAMOTRIGINE. [Concomitant]
     Active Substance: LAMOTRIGINE
     Dates: start: 20150702
  23. TOCILIZUMAB. [Concomitant]
     Active Substance: TOCILIZUMAB
     Dates: start: 20201209, end: 20201210
  24. DEXAMETHASONE. [Concomitant]
     Active Substance: DEXAMETHASONE
     Dates: start: 20201209, end: 20201212
  25. SODIUM PICOSULFATE [Concomitant]
     Active Substance: SODIUM PICOSULFATE
     Dosage: ONGOING
     Dates: start: 20200210
  26. PREDNISOLONE. [Concomitant]
     Active Substance: PREDNISOLONE
     Dates: start: 20201130, end: 20201224
  27. GABAPENTIN. [Concomitant]
     Active Substance: GABAPENTIN
     Dates: start: 20190309
  28. MIRTAZAPINE. [Concomitant]
     Active Substance: MIRTAZAPINE
     Dates: start: 20180621
  29. MAGNESIUM [Concomitant]
     Active Substance: MAGNESIUM
     Dates: start: 20210103
  30. GEMCITABINE/GEMCITABINE HYDROCHLORIDE [Suspect]
     Active Substance: GEMCITABINE\GEMCITABINE HYDROCHLORIDE
     Indication: DIFFUSE LARGE B-CELL LYMPHOMA
     Dosage: DOSE INTERRUPTED
     Route: 042
     Dates: start: 20201130, end: 20201130
  31. EPCORITAMAB. [Suspect]
     Active Substance: EPCORITAMAB
     Indication: DIFFUSE LARGE B-CELL LYMPHOMA
     Dosage: DOSE INTERRUPTED
     Route: 058
     Dates: start: 20201214, end: 20201221
  32. DIAZEPAM. [Concomitant]
     Active Substance: DIAZEPAM
     Dates: start: 20200710
  33. FENOTEROL/IPRATROPIUM BROMIDE [Concomitant]
     Active Substance: FENOTEROL HYDROBROMIDE\IPRATROPIUM BROMIDE
     Dates: start: 20201209, end: 20201215
  34. PIPERACILLIN/TAZOBACTAM [Concomitant]
     Active Substance: PIPERACILLIN SODIUM\TAZOBACTAM SODIUM
     Dates: start: 20201205, end: 20201209
  35. SULFAMETHOXAZOLE/TRIMETHOPRIM [Concomitant]
     Active Substance: SULFAMETHOXAZOLE\TRIMETHOPRIM
     Dates: start: 20210106
  36. GEMCITABINE/GEMCITABINE HYDROCHLORIDE [Suspect]
     Active Substance: GEMCITABINE\GEMCITABINE HYDROCHLORIDE
     Indication: DIFFUSE LARGE B-CELL LYMPHOMA
     Dosage: DOSE INTERRUPTED
     Route: 042
     Dates: start: 20201214, end: 20201214
  37. MACROGOL/MACROGOL STEARATE [Concomitant]
     Active Substance: POLYETHYLENE GLYCOLS
     Dates: start: 20190216
  38. PARACETAMOL [Concomitant]
     Active Substance: ACETAMINOPHEN
     Dates: start: 20200710, end: 20201201
  39. MEROPENEM/MEROPENEM TRIHYDRATE [Concomitant]
     Active Substance: MEROPENEM
     Dates: start: 20201209, end: 20201214
  40. FUROSEMIDE. [Concomitant]
     Active Substance: FUROSEMIDE
     Dates: start: 20201201
  41. CETIRIZINE [Concomitant]
     Active Substance: CETIRIZINE HYDROCHLORIDE
     Dates: start: 20201130, end: 20210106
  42. OXALIPLATIN. [Suspect]
     Active Substance: OXALIPLATIN
     Indication: DIFFUSE LARGE B-CELL LYMPHOMA
     Route: 042
     Dates: start: 20201130, end: 20201130
  43. GEMCITABINE/GEMCITABINE HYDROCHLORIDE [Suspect]
     Active Substance: GEMCITABINE\GEMCITABINE HYDROCHLORIDE
     Indication: DIFFUSE LARGE B-CELL LYMPHOMA
     Dosage: DOSE INTERRUPTED
     Route: 042
     Dates: start: 20210106, end: 20210106
  44. OXALIPLATIN. [Suspect]
     Active Substance: OXALIPLATIN
     Indication: DIFFUSE LARGE B-CELL LYMPHOMA
     Route: 042
     Dates: start: 20210106, end: 20210106
  45. FUROSEMIDE. [Concomitant]
     Active Substance: FUROSEMIDE
     Dates: start: 20201216
  46. ALLOPURINOL. [Concomitant]
     Active Substance: ALLOPURINOL
     Dates: start: 20201130, end: 20201203
  47. LEVETIRACETAM. [Concomitant]
     Active Substance: LEVETIRACETAM
     Dates: start: 20201209, end: 20201209
  48. DEXAMETHASONE. [Concomitant]
     Active Substance: DEXAMETHASONE
     Dates: start: 20210113, end: 20210117

REACTIONS (3)
  - Urosepsis [Recovered/Resolved]
  - Urinary tract infection [Recovered/Resolved]
  - Off label use [Unknown]

NARRATIVE: CASE EVENT DATE: 20201226
